FAERS Safety Report 23835643 (Version 2)
Quarter: 2024Q2

REPORT INFORMATION
  Report Type: Spontaneous
  Country: FR (occurrence: FR)
  Receive Date: 20240509
  Receipt Date: 20240521
  Transmission Date: 20240716
  Serious: Yes (Life-Threatening)
  Sender: FDA-Public Use
  Company Number: None

PATIENT
  Age: 71 Year
  Sex: Male
  Weight: 93.5 kg

DRUGS (12)
  1. TRIHEXYPHENIDYL [Concomitant]
     Active Substance: TRIHEXYPHENIDYL
     Indication: Hypertension
     Dosage: 10 MG, QD
     Route: 048
  2. CHOLECALCIFEROL [Concomitant]
     Active Substance: CHOLECALCIFEROL
     Indication: Product used for unknown indication
     Dosage: 1 DF
     Route: 048
  3. ALFUZOSIN HYDROCHLORIDE [Interacting]
     Active Substance: ALFUZOSIN HYDROCHLORIDE
     Indication: Schizophrenia
     Dosage: 10 MG, QD
     Route: 048
     Dates: end: 20240401
  4. AMLODIPINE [Interacting]
     Active Substance: AMLODIPINE BESYLATE
     Indication: Hypertension
     Dosage: 5.000MG QD
     Route: 048
     Dates: end: 20240401
  5. BISOPROLOL FUMARATE [Interacting]
     Active Substance: BISOPROLOL FUMARATE
     Indication: Product used for unknown indication
     Dosage: 5 MG, QD
     Route: 048
     Dates: end: 20240401
  6. ZUCLOPENTHIXOL [Interacting]
     Active Substance: ZUCLOPENTHIXOL
     Indication: Schizophrenia
     Dosage: 3 DF
     Route: 030
  7. FUROSEMIDE [Interacting]
     Active Substance: FUROSEMIDE
     Indication: Benign prostatic hyperplasia
     Dosage: 80 MG, QD
     Route: 048
     Dates: start: 20240401, end: 20240401
  8. FUROSEMIDE [Interacting]
     Active Substance: FUROSEMIDE
     Indication: Hypertension
  9. FUROSEMIDE [Interacting]
     Active Substance: FUROSEMIDE
     Indication: Hypertension
  10. HALOPERIDOL [Interacting]
     Active Substance: HALOPERIDOL
     Indication: Hypertension
     Dosage: 15 MG, QD
     Route: 048
     Dates: end: 20240401
  11. PERINDOPRIL [Interacting]
     Active Substance: PERINDOPRIL
     Indication: Hypertension
     Dosage: 5 MG, QD
     Route: 048
     Dates: end: 20240401
  12. QUETIAPINE [Interacting]
     Active Substance: QUETIAPINE
     Indication: Schizophrenia
     Dosage: 800 MG, QD
     Route: 048
     Dates: end: 20240401

REACTIONS (2)
  - Hypotension [Recovering/Resolving]
  - Drug interaction [Unknown]

NARRATIVE: CASE EVENT DATE: 20240401
